FAERS Safety Report 7052164-1 (Version None)
Quarter: 2010Q4

REPORT INFORMATION
  Report Type: 
  Country: None (occurrence: None)
  Receive Date: 20101018
  Receipt Date: 20101018
  Transmission Date: 20110411
  Serious: No
  Sender: FDA-Public Use
  Company Number: None

PATIENT
  Age: 40 Year
  Sex: Male
  Weight: 90.7194 kg

DRUGS (1)
  1. DIVALPROEX SODIUM [Suspect]
     Dosage: 500 MG AMHS PO
     Route: 048

REACTIONS (1)
  - AMMONIA INCREASED [None]
